FAERS Safety Report 4951352-5 (Version None)
Quarter: 2006Q1

REPORT INFORMATION
  Report Type: 
  Country: None (occurrence: None)
  Receive Date: 20060317
  Receipt Date: 20060220
  Transmission Date: 20060701
  Serious: Yes (Disabling)
  Sender: FDA-Public Use
  Company Number: 200513483GDS

PATIENT
  Age: 67 Year
  Sex: Male
  Weight: 55.2 kg

DRUGS (13)
  1. ADALAT [Suspect]
     Indication: HYPERTENSION
     Dosage: 80 MG, TOTAL DAILY, ORAL
     Route: 048
     Dates: start: 20040730
  2. ADALAT [Suspect]
     Indication: HYPERTENSION
     Dosage: 10 MG, TOTAL DAILY,
     Dates: start: 20040806, end: 20041227
  3. DOXAZOSIN MESYLATE [Suspect]
     Indication: BLOOD PRESSURE INCREASED
     Dosage: 8 MG, TOTAL DAILY, ORAL
     Route: 048
  4. AMLODIPINE [Concomitant]
     Dosage: 10 MG, TOTAL DAILY,
  5. ATENOLOL [Concomitant]
  6. URAPIDIL [Concomitant]
  7. CANDESARTAN [Concomitant]
  8. EBUTOL [Concomitant]
  9. ISCOTIN [Concomitant]
  10. RIFADIN [Concomitant]
  11. ACECOL [Concomitant]
  12. SODIUM BICARBONATE [Concomitant]
  13. KREMEZIN [Concomitant]

REACTIONS (10)
  - BLOOD PRESSURE DECREASED [None]
  - BLOOD PRESSURE INADEQUATELY CONTROLLED [None]
  - CONDITION AGGRAVATED [None]
  - DRUG INTERACTION [None]
  - FATIGUE [None]
  - FLUID RETENTION [None]
  - HAEMODIALYSIS [None]
  - HYPERTENSION [None]
  - OEDEMA [None]
  - RENAL FAILURE CHRONIC [None]
